FAERS Safety Report 23836269 (Version 1)
Quarter: 2024Q2

REPORT INFORMATION
  Report Type: Spontaneous
  Country: US (occurrence: US)
  Receive Date: 20240509
  Receipt Date: 20240509
  Transmission Date: 20240716
  Serious: No
  Sender: FDA-Public Use
  Company Number: US-PFIZER INC-202400102840

PATIENT
  Sex: Female

DRUGS (1)
  1. DACARBAZINE [Suspect]
     Active Substance: DACARBAZINE
     Dosage: UNK
     Dates: start: 202405

REACTIONS (1)
  - Infusion site pain [Unknown]

NARRATIVE: CASE EVENT DATE: 20240501
